FAERS Safety Report 5491876-8 (Version None)
Quarter: 2007Q4

REPORT INFORMATION
  Report Type: 
  Country: None (occurrence: None)
  Receive Date: 20071022
  Receipt Date: 20071011
  Transmission Date: 20080405
  Serious: Yes (Other)
  Sender: FDA-Public Use
  Company Number: IE-ASTRAZENECA-2007GB01581

PATIENT
  Age: 60 Year
  Sex: Female
  Weight: 70 kg

DRUGS (6)
  1. TAMOXIFEN CITRATE [Suspect]
     Indication: BREAST CANCER METASTATIC
     Route: 048
     Dates: start: 20060401, end: 20070701
  2. FOSAMAX [Concomitant]
     Indication: OSTEOARTHRITIS
     Route: 048
  3. IDEOS [Concomitant]
     Indication: OSTEOARTHRITIS
     Route: 048
  4. PRAVASTATIN [Concomitant]
     Indication: OSTEOARTHRITIS
     Route: 048
  5. HYDROCORTISONE [Concomitant]
     Indication: OSTEOARTHRITIS
     Route: 048
  6. FLORINEF [Concomitant]
     Route: 048

REACTIONS (3)
  - DEEP VEIN THROMBOSIS [None]
  - FALL [None]
  - SKELETAL INJURY [None]
